APPROVED DRUG PRODUCT: ELYXYB
Active Ingredient: CELECOXIB
Strength: 25MG/ML
Dosage Form/Route: SOLUTION;ORAL
Application: N212157 | Product #001
Applicant: SCILEX PHARMACEUTICALS INC
Approved: May 5, 2020 | RLD: Yes | RS: Yes | Type: RX

PATENTS:
Patent 10722456 | Expires: May 27, 2036
Patent 10799517 | Expires: May 27, 2036
Patent 9949990 | Expires: May 27, 2036
Patent 9795620 | Expires: May 27, 2036
Patent 9572819 | Expires: May 27, 2036
Patent 10376527 | Expires: May 27, 2036